FAERS Safety Report 7964607-7 (Version None)
Quarter: 2011Q4

REPORT INFORMATION
  Report Type: 
  Country: None (occurrence: None)
  Receive Date: 20111208
  Receipt Date: 20111123
  Transmission Date: 20120403
  Serious: Yes (Other)
  Sender: FDA-Public Use
  Company Number: US-SANOFI-AVENTIS-2010SA040567

PATIENT
  Age: 49 Year
  Sex: Male
  Weight: 86.18 kg

DRUGS (4)
  1. LANTUS [Suspect]
     Dosage: 28-40 UNITS DAILY
     Route: 058
     Dates: start: 20030613, end: 20091119
  2. ALTACE [Concomitant]
     Route: 065
     Dates: start: 20050221
  3. AMARYL [Concomitant]
     Dates: start: 20040709
  4. AVANDIA [Concomitant]
     Dates: start: 20010929

REACTIONS (6)
  - VOCAL CORD PARALYSIS [None]
  - ARTHRALGIA [None]
  - ASTHENIA [None]
  - MUSCLE ATROPHY [None]
  - DYSSTASIA [None]
  - GAIT DISTURBANCE [None]
